FAERS Safety Report 7020119-9 (Version None)
Quarter: 2010Q3

REPORT INFORMATION
  Report Type: 
  Country: None (occurrence: None)
  Receive Date: 20100927
  Receipt Date: 20100920
  Transmission Date: 20110219
  Serious: Yes (Hospitalization)
  Sender: FDA-Public Use
  Company Number: UTC-001463

PATIENT
  Age: 54 Year
  Sex: Female
  Weight: 72.9 kg

DRUGS (8)
  1. REMODULIN [Suspect]
     Indication: PULMONARY ARTERIAL HYPERTENSION
     Dosage: 216 UG/KG (0.15 UG/KG, 1 IN 1 MIN), SUBCUTANEOUS
     Route: 058
     Dates: start: 20090723
  2. PROTONIX [Concomitant]
  3. FUROSEMIDE [Concomitant]
  4. AZATHIOPRINE [Concomitant]
  5. ALDACTONE [Concomitant]
  6. MAGNESIUM OXIDE (MAGNESIUM OXIDE) [Concomitant]
  7. LETAIRIS (AMBRISENTAN) [Concomitant]
  8. ADCIRCA (TADALAFIL) [Concomitant]

REACTIONS (2)
  - HAEMOPTYSIS [None]
  - THROMBOSIS IN DEVICE [None]
